FAERS Safety Report 19242601 (Version 1)
Quarter: 2021Q2

REPORT INFORMATION
  Report Type: Spontaneous
  Country: US (occurrence: NL)
  Receive Date: 20210510
  Receipt Date: 20210510
  Transmission Date: 20210717
  Serious: Yes (Hospitalization, Other)
  Sender: FDA-Public Use
  Company Number: US-TWI PHARMACEUTICAL, INC-2021SCTW000035

PATIENT

DRUGS (1)
  1. BUPROPION HYDROCHLORIDE XL [Suspect]
     Active Substance: BUPROPION HYDROCHLORIDE
     Indication: PRODUCT USED FOR UNKNOWN INDICATION
     Dosage: 150 MG (AT LEAST 100 TABLETS INGESTED)
     Route: 048

REACTIONS (9)
  - Bundle branch block left [Recovering/Resolving]
  - Status epilepticus [Unknown]
  - Intentional overdose [Unknown]
  - Electrocardiogram QRS complex prolonged [Recovering/Resolving]
  - Cardiomyopathy [Recovering/Resolving]
  - Hypokinesia [Unknown]
  - Hallucination [Unknown]
  - Cardiogenic shock [Recovering/Resolving]
  - Tachycardia [Recovering/Resolving]
